FAERS Safety Report 20072191 (Version 1)
Quarter: 2021Q4

REPORT INFORMATION
  Report Type: Spontaneous
  Country: US (occurrence: US)
  Receive Date: 20211116
  Receipt Date: 20211116
  Transmission Date: 20220303
  Serious: Yes (Death, Hospitalization, Other)
  Sender: FDA-Public Use
  Company Number: US-CIPLA LTD.-2021US07465

PATIENT

DRUGS (10)
  1. TERBINAFINE [Suspect]
     Active Substance: TERBINAFINE
     Indication: Fungal infection
     Dosage: UNK UNK, QD (1 PILL (AFTERNOON))
     Route: 065
     Dates: start: 20211018, end: 20211020
  2. TERBINAFINE [Suspect]
     Active Substance: TERBINAFINE
     Dosage: UNK, QD (1 PILL (DURING NIGHT))
     Route: 065
     Dates: start: 20211019, end: 20211020
  3. LEVOTHYROXINE [Concomitant]
     Active Substance: LEVOTHYROXINE
     Indication: Product used for unknown indication
     Dosage: 50 MCG, QD (ONE TABLET BY MOUTH BEFORE MEAL)
     Route: 048
     Dates: end: 20211026
  4. ROPINIROLE [Concomitant]
     Active Substance: ROPINIROLE
     Indication: Product used for unknown indication
     Dosage: 0.5 MILLIGRAM, (1-2 TABLETS BY MOUTH DAILY AFTER SUPPER)
     Route: 048
     Dates: end: 20211026
  5. PAROXETINE [Concomitant]
     Active Substance: PAROXETINE
     Indication: Product used for unknown indication
     Dosage: 10 MILLIGRAM, QD
     Route: 065
     Dates: end: 20211026
  6. PROMETHAZINE [Concomitant]
     Active Substance: PROMETHAZINE HYDROCHLORIDE
     Indication: Nausea
     Dosage: 25 MILLIGRAM, HALF TO ONE TABLET EVERY 4 HOURS OR AS NEEDED
     Route: 065
     Dates: end: 20211026
  7. TRELEGY ELLIPTA [Concomitant]
     Active Substance: FLUTICASONE FUROATE\UMECLIDINIUM BROMIDE\VILANTEROL TRIFENATATE
     Indication: Product used for unknown indication
     Dosage: 100 MCG, BID (MORNING AND NIGHT)
     Route: 065
     Dates: end: 20211026
  8. GUAIFENESIN [Concomitant]
     Active Substance: GUAIFENESIN
     Indication: Product used for unknown indication
     Dosage: 500 MILLIGRAM, QD
     Route: 065
     Dates: end: 20211026
  9. IBUPROFEN [Concomitant]
     Active Substance: IBUPROFEN
     Indication: Product used for unknown indication
     Dosage: UNK
     Route: 065
     Dates: end: 20211026
  10. ASPIRIN [Concomitant]
     Active Substance: ASPIRIN
     Indication: Product used for unknown indication
     Dosage: UNK
     Route: 065
     Dates: end: 20211026

REACTIONS (13)
  - Lung disorder [Fatal]
  - Dyspnoea [Unknown]
  - Hallucination [Unknown]
  - Altered state of consciousness [Unknown]
  - Derealisation [Unknown]
  - Gait inability [Unknown]
  - Illness [Unknown]
  - Dizziness [Unknown]
  - Nausea [Unknown]
  - Decreased appetite [Unknown]
  - Diarrhoea [Unknown]
  - Weight decreased [Unknown]
  - Vomiting [Unknown]

NARRATIVE: CASE EVENT DATE: 20211001
